FAERS Safety Report 17637098 (Version 1)
Quarter: 2020Q2

REPORT INFORMATION
  Report Type: Spontaneous
  Country: US (occurrence: US)
  Receive Date: 20200407
  Receipt Date: 20200407
  Transmission Date: 20200713
  Serious: No
  Sender: FDA-Public Use
  Company Number: US-BAYER-2020-056865

PATIENT
  Age: 70 Year
  Sex: Female

DRUGS (4)
  1. LAXATIVE [BISACODYL] [Concomitant]
     Active Substance: BISACODYL
  2. OSCILLOCOCCINUM [Concomitant]
     Active Substance: CAIRINA MOSCHATA HEART/LIVER AUTOLYSATE
  3. MIRALAX [Suspect]
     Active Substance: POLYETHYLENE GLYCOL 3350
     Indication: ILEUS PARALYTIC
     Dosage: 225 G, QD
     Route: 048
     Dates: start: 2005
  4. EYE DROPS [NAPHAZOLINE HYDROCHLORIDE] [Concomitant]

REACTIONS (2)
  - Product contamination physical [None]
  - Drug effective for unapproved indication [Unknown]

NARRATIVE: CASE EVENT DATE: 2005
